FAERS Safety Report 9644197 (Version 2)
Quarter: 2013Q4

REPORT INFORMATION
  Report Type: Report from Study
  Country: GB (occurrence: GB)
  Receive Date: 20131024
  Receipt Date: 20131024
  Transmission Date: 20140711
  Serious: Yes (Death)
  Sender: FDA-Public Use
  Company Number: GB-ROCHE-1284476

PATIENT
  Sex: 0
  Weight: 65 kg

DRUGS (11)
  1. BEVACIZUMAB [Suspect]
     Indication: OVARIAN CANCER
     Route: 042
     Dates: start: 20130207, end: 20130927
  2. CAPECITABINE [Suspect]
     Indication: OVARIAN CANCER
     Route: 048
     Dates: start: 20130207, end: 20130606
  3. OXALIPLATIN [Suspect]
     Indication: OVARIAN CANCER
     Route: 042
     Dates: start: 20130207, end: 20130524
  4. NAPROXEN [Concomitant]
     Indication: PAIN
     Route: 048
     Dates: end: 20131003
  5. THYROXINE [Concomitant]
     Indication: HYPOTHYROIDISM
     Route: 048
     Dates: end: 20131003
  6. TRAMADOL [Concomitant]
     Indication: PAIN
     Route: 048
     Dates: end: 20131003
  7. MIRTAZAPINE [Concomitant]
     Route: 048
     Dates: end: 20131003
  8. ASACOL [Concomitant]
     Indication: COLITIS
     Dosage: 8 PER DAY
     Route: 048
     Dates: end: 20131003
  9. OMEPRAZOLE [Concomitant]
     Indication: COLITIS
     Route: 048
     Dates: end: 20131003
  10. FERROUS SULPHATE [Concomitant]
     Indication: ANAEMIA
     Route: 048
     Dates: start: 20130901, end: 20131003
  11. PREDNISOLONE [Concomitant]
     Indication: COLITIS
     Route: 048
     Dates: start: 20130901, end: 20131003

REACTIONS (1)
  - Gastrointestinal perforation [Fatal]
